FAERS Safety Report 8958987 (Version 1)
Quarter: 2012Q4

REPORT INFORMATION
  Report Type: 
  Country: US (occurrence: US)
  Receive Date: 20121212
  Receipt Date: 20121212
  Transmission Date: 20130627
  Serious: Yes (Hospitalization, Other)
  Sender: FDA-Public Use
  Company Number: US-AMGEN-USASP2012079143

PATIENT
  Sex: Female

DRUGS (2)
  1. PROLIA [Suspect]
     Indication: OSTEOPOROSIS POSTMENOPAUSAL
  2. CORTICOSTEROIDS [Concomitant]
     Indication: SPINAL COLUMN STENOSIS

REACTIONS (5)
  - Kidney infection [Recovered/Resolved]
  - Escherichia urinary tract infection [Recovered/Resolved]
  - Blood pressure increased [Unknown]
  - Poor peripheral circulation [Unknown]
  - Skin infection [Not Recovered/Not Resolved]
